FAERS Safety Report 23905498 (Version 1)
Quarter: 2024Q2

REPORT INFORMATION
  Report Type: Spontaneous
  Country: CN (occurrence: CN)
  Receive Date: 20240527
  Receipt Date: 20240527
  Transmission Date: 20240716
  Serious: Yes (Hospitalization, Other)
  Sender: FDA-Public Use
  Company Number: None

PATIENT
  Age: 4 Year
  Sex: Male
  Weight: 12.5 kg

DRUGS (9)
  1. CYCLOPHOSPHAMIDE [Suspect]
     Active Substance: CYCLOPHOSPHAMIDE
     Indication: Rhabdomyosarcoma
     Dosage: 450 MG (ALSO REPORTED AS 0.45G), ONE TIME IN ONE DAY, DILUTED WITH SODIUM CHLORIDE 250 ML (START TIM
     Route: 041
     Dates: start: 20240504, end: 20240506
  2. CYCLOPHOSPHAMIDE [Suspect]
     Active Substance: CYCLOPHOSPHAMIDE
     Indication: Medulloblastoma
  3. SODIUM CHLORIDE [Suspect]
     Active Substance: SODIUM CHLORIDE
     Indication: Medication dilution
     Dosage: 250 ML, ONE TIME IN ONE DAY, USED TO DILUTE 450 MG (0.45 G) OF CYCLOPHOSPHAMIDE (START TIME: AT 08:0
     Route: 042
     Dates: start: 20240504, end: 20240506
  4. SODIUM CHLORIDE [Suspect]
     Active Substance: SODIUM CHLORIDE
     Dosage: 250 ML, ONE TIME IN ONE DAY, USED TO DILUTE 45.7 MG  OF CISPLATIN (START TIME: AT 08:00)
     Route: 041
     Dates: start: 20240504, end: 20240505
  5. SODIUM CHLORIDE [Suspect]
     Active Substance: SODIUM CHLORIDE
     Dosage: 20 ML, ONE TIME IN ONE DAY, USED TO DILUTE 0.91 MG OF VINCRISTINE SULFATE (START TIME: AT 08:00)
     Route: 042
     Dates: start: 20240504, end: 20240505
  6. CISPLATIN [Suspect]
     Active Substance: CISPLATIN
     Indication: Medulloblastoma
     Dosage: 45.7 MG, ONE TIME IN ONE DAY, DILUTED WITH SODIUM CHLORIDE 250 ML (START TIME: AT 08:00)
     Route: 041
     Dates: start: 20240504, end: 20240505
  7. CISPLATIN [Suspect]
     Active Substance: CISPLATIN
     Indication: Rhabdomyosarcoma
  8. VINCRISTINE SULFATE [Suspect]
     Active Substance: VINCRISTINE SULFATE
     Indication: Rhabdomyosarcoma
     Dosage: 0.91 MG, ONE TIME IN ONE DAY, DILUTED WITH SODIUM CHLORIDE 20 ML (START TIME: AT 08:00)
     Route: 042
     Dates: start: 20240504, end: 20240505
  9. VINCRISTINE SULFATE [Suspect]
     Active Substance: VINCRISTINE SULFATE
     Indication: Medulloblastoma

REACTIONS (3)
  - Myelosuppression [Recovering/Resolving]
  - Blood test abnormal [Unknown]
  - Blood bilirubin increased [Recovering/Resolving]

NARRATIVE: CASE EVENT DATE: 20240513
